FAERS Safety Report 13713096 (Version 2)
Quarter: 2017Q3

REPORT INFORMATION
  Report Type: Spontaneous
  Country: JP (occurrence: JP)
  Receive Date: 20170704
  Receipt Date: 20170825
  Transmission Date: 20171127
  Serious: Yes (Other)
  Sender: FDA-Public Use
  Company Number: PHJP2017JP021502

PATIENT
  Age: 80 Year
  Sex: Female

DRUGS (1)
  1. VOTRIENT [Suspect]
     Active Substance: PAZOPANIB HYDROCHLORIDE
     Indication: METASTATIC RENAL CELL CARCINOMA
     Dosage: 600 MG, UNK
     Route: 048
     Dates: end: 20170623

REACTIONS (3)
  - Hepatic atrophy [Recovered/Resolved]
  - Hypoalbuminaemia [Recovering/Resolving]
  - Oedema [Recovering/Resolving]
